FAERS Safety Report 5491630-7 (Version None)
Quarter: 2007Q4

REPORT INFORMATION
  Report Type: 
  Country: None (occurrence: None)
  Receive Date: 20071019
  Receipt Date: 20071019
  Transmission Date: 20080405
  Serious: Yes (Other)
  Sender: FDA-Public Use
  Company Number: None

PATIENT
  Age: 56 Year
  Sex: Male

DRUGS (1)
  1. GENTAMICIN [Suspect]
     Dates: start: 20070104, end: 20070104

REACTIONS (10)
  - ABDOMINAL PAIN [None]
  - ANOREXIA [None]
  - CHOLESTASIS [None]
  - FOOT OPERATION [None]
  - HEPATIC FIBROSIS [None]
  - HEPATIC STEATOSIS [None]
  - LIVER DISORDER [None]
  - LIVER INJURY [None]
  - MALAISE [None]
  - WEIGHT DECREASED [None]
